FAERS Safety Report 4559581-X (Version None)
Quarter: 2005Q1

REPORT INFORMATION
  Report Type: 
  Country: None (occurrence: None)
  Receive Date: 20050119
  Receipt Date: 20050105
  Transmission Date: 20050727
  Serious: Yes (Hospitalization)
  Sender: FDA-Public Use
  Company Number: 2005-00035

PATIENT
  Age: 6 Hour
  Sex: Female
  Weight: 1.3 kg

DRUGS (1)
  1. ISONIAZID [Suspect]
     Indication: TUBERCULOSIS PROPHYLAXIS
     Dosage: 10 MG/KG, QAM

REACTIONS (1)
  - HYPOGLYCAEMIA NEONATAL [None]
